FAERS Safety Report 10071420 (Version 1)
Quarter: 2014Q2

REPORT INFORMATION
  Report Type: Spontaneous
  Country: US (occurrence: US)
  Receive Date: 20140410
  Receipt Date: 20140410
  Transmission Date: 20141212
  Serious: No
  Sender: FDA-Public Use
  Company Number: US-ENDO PHARMACEUTICALS INC.-PRIM20130006

PATIENT
  Age: 60 Year
  Sex: Female

DRUGS (3)
  1. PRIMIDONE TABLETS 50MG [Suspect]
     Indication: TREMOR
     Route: 048
     Dates: start: 2010
  2. HYDROCODONE BITARTRATE / ACETAMINOPHEN [Concomitant]
     Indication: PAIN
     Dosage: UNKNOWN
     Route: 048
  3. CIPRO [Concomitant]
     Indication: URINARY TRACT INFECTION
     Dosage: UNKNOWN
     Route: 065
     Dates: start: 201308, end: 201308

REACTIONS (4)
  - Vertigo [Unknown]
  - Inappropriate schedule of drug administration [Not Recovered/Not Resolved]
  - Drug effect decreased [Not Recovered/Not Resolved]
  - Drug ineffective for unapproved indication [Not Recovered/Not Resolved]
